FAERS Safety Report 13673508 (Version 1)
Quarter: 2017Q2

REPORT INFORMATION
  Report Type: Report from Study
  Country: US (occurrence: US)
  Receive Date: 20170621
  Receipt Date: 20170621
  Transmission Date: 20170830
  Serious: Yes (Hospitalization)
  Sender: FDA-Public Use
  Company Number: US-TAIHO ONCOLOGY INC-EU-2017-00791

PATIENT
  Age: 56 Year
  Sex: Female

DRUGS (1)
  1. LONSURF [Suspect]
     Active Substance: TIPIRACIL HYDROCHLORIDE\TRIFLURIDINE
     Indication: COLON CANCER METASTATIC
     Dosage: CYCLE 2 STARTED ON 08MAY2017
     Route: 048
     Dates: start: 201704

REACTIONS (3)
  - Abdominal pain upper [Unknown]
  - Urinary tract infection [Unknown]
  - Urethral stenosis [Unknown]

NARRATIVE: CASE EVENT DATE: 2017
